FAERS Safety Report 7386451-4 (Version None)
Quarter: 2011Q1

REPORT INFORMATION
  Report Type: 
  Country: None (occurrence: None)
  Receive Date: 20110329
  Receipt Date: 20110329
  Transmission Date: 20110831
  Serious: Yes (Other)
  Sender: FDA-Public Use
  Company Number: None

PATIENT
  Age: 44 Year
  Sex: Female
  Weight: 122.4712 kg

DRUGS (1)
  1. LAMICTAL [Suspect]
     Indication: BIPOLAR I DISORDER
     Dosage: 2 PILLS OF 25MG EACH BID PO
     Route: 048
     Dates: start: 20110215, end: 20110410

REACTIONS (5)
  - THINKING ABNORMAL [None]
  - IMPAIRED WORK ABILITY [None]
  - AMNESIA [None]
  - COGNITIVE DISORDER [None]
  - SPEECH DISORDER [None]
